FAERS Safety Report 6752356-2 (Version None)
Quarter: 2010Q2

REPORT INFORMATION
  Report Type: 
  Country: None (occurrence: None)
  Receive Date: 20100601
  Receipt Date: 20100601
  Transmission Date: 20101027
  Serious: No
  Sender: FDA-Public Use
  Company Number: None

PATIENT
  Age: 63 Year
  Sex: Male

DRUGS (1)
  1. TAMSULOSIN HCL [Suspect]
     Dosage: TAKE 1 CAPSULE DAILY
     Dates: start: 20100313, end: 20100316

REACTIONS (4)
  - DRUG INEFFECTIVE [None]
  - NOCTURIA [None]
  - PENILE PAIN [None]
  - PRODUCT SUBSTITUTION ISSUE [None]
